FAERS Safety Report 23745359 (Version 4)
Quarter: 2025Q2

REPORT INFORMATION
  Report Type: Spontaneous
  Country: US (occurrence: US)
  Receive Date: 20240416
  Receipt Date: 20250626
  Transmission Date: 20250717
  Serious: Yes (Other)
  Sender: BRISTOL-MYERS SQUIBB COMPANY
  Company Number: US-BRISTOL-MYERS SQUIBB COMPANY-2024-058063

PATIENT
  Age: 66 Year
  Sex: Female

DRUGS (4)
  1. REVLIMID [Suspect]
     Active Substance: LENALIDOMIDE
     Indication: Plasma cell myeloma
     Route: 048
  2. REVLIMID [Suspect]
     Active Substance: LENALIDOMIDE
     Dosage: QD FOR 21 DAYS AND 7 DAYS OF
     Route: 048
  3. REVLIMID [Suspect]
     Active Substance: LENALIDOMIDE
     Dosage: QD FOR 21 DAYS AND 7 DAYS OF
     Route: 048
  4. REVLIMID [Suspect]
     Active Substance: LENALIDOMIDE
     Dosage: QD,STRENGTH-5MG
     Route: 048

REACTIONS (5)
  - Muscular weakness [Unknown]
  - Fatigue [Recovering/Resolving]
  - Neuropathy peripheral [Recovering/Resolving]
  - Constipation [Recovering/Resolving]
  - Rash pruritic [Recovering/Resolving]
